FAERS Safety Report 6387251-4 (Version None)
Quarter: 2009Q3

REPORT INFORMATION
  Report Type: 
  Country: None (occurrence: None)
  Receive Date: 20090928
  Receipt Date: 20090917
  Transmission Date: 20100115
  Serious: Yes (Hospitalization)
  Sender: FDA-Public Use
  Company Number: GXKR2009US10414

PATIENT
  Age: 53 Year
  Sex: Male

DRUGS (5)
  1. SULFAMETHOXAZOLE+TRIEMTHOPRIM (NGX)(SULFAMETHOXAZOLE, TRIMETHOPRIM) [Suspect]
     Indication: CELLULITIS
  2. ASPIRIN [Concomitant]
  3. WARFARIN SODIUM [Concomitant]
  4. METOPROLOL (METOPROLOL) [Concomitant]
  5. TORSEMIDE [Concomitant]

REACTIONS (9)
  - ARTHRALGIA [None]
  - DIZZINESS [None]
  - HEART RATE INCREASED [None]
  - HEART RATE IRREGULAR [None]
  - HEART SOUNDS ABNORMAL [None]
  - INTERNATIONAL NORMALISED RATIO INCREASED [None]
  - LEUKOCYTOCLASTIC VASCULITIS [None]
  - NAUSEA [None]
  - PROTHROMBIN TIME PROLONGED [None]
